FAERS Safety Report 4783991-9 (Version None)
Quarter: 2005Q3

REPORT INFORMATION
  Report Type: 
  Country: None (occurrence: None)
  Receive Date: 20050927
  Receipt Date: 20050808
  Transmission Date: 20060218
  Serious: No
  Sender: FDA-Public Use
  Company Number: USA0508104967

PATIENT
  Age: 13 Year
  Sex: Female

DRUGS (3)
  1. STRATTERA [Suspect]
  2. FLUOXETINE [Concomitant]
  3. DEPAKOTE [Concomitant]

REACTIONS (3)
  - ANOREXIA [None]
  - IMPULSIVE BEHAVIOUR [None]
  - NERVOUSNESS [None]
